FAERS Safety Report 22278304 (Version 1)
Quarter: 2023Q2

REPORT INFORMATION
  Report Type: Spontaneous
  Country: US (occurrence: US)
  Receive Date: 20230503
  Receipt Date: 20230503
  Transmission Date: 20230722
  Serious: No
  Sender: FDA-Public Use
  Company Number: US-ELI_LILLY_AND_COMPANY-US202304012908

PATIENT
  Sex: Male

DRUGS (2)
  1. TALTZ [Suspect]
     Active Substance: IXEKIZUMAB
     Indication: Product used for unknown indication
     Dosage: UNK UNK, UNKNOWN
     Route: 058
  2. TALTZ [Suspect]
     Active Substance: IXEKIZUMAB
     Dosage: UNK UNK, UNKNOWN
     Route: 065
     Dates: start: 20230421

REACTIONS (12)
  - Erythema [Recovered/Resolved]
  - Pruritus [Recovered/Resolved]
  - Abdominal distension [Unknown]
  - Induration [Recovered/Resolved]
  - Feeling hot [Recovered/Resolved]
  - Abdominal discomfort [Recovered/Resolved]
  - Injection site erythema [Recovered/Resolved]
  - Injection site warmth [Recovered/Resolved]
  - Injection site pruritus [Recovered/Resolved]
  - Injection site induration [Recovered/Resolved]
  - Injection site swelling [Unknown]
  - Injection site irritation [Recovered/Resolved]
